FAERS Safety Report 19954100 (Version 1)
Quarter: 2021Q4

REPORT INFORMATION
  Report Type: Spontaneous
  Country: PL (occurrence: PL)
  Receive Date: 20211013
  Receipt Date: 20211013
  Transmission Date: 20220304
  Serious: Yes (Other)
  Sender: FDA-Public Use
  Company Number: PL-JNJFOC-20210934939

PATIENT
  Age: 85 Year
  Sex: Male

DRUGS (11)
  1. ZOLEDRONIC ACID [Suspect]
     Active Substance: ZOLEDRONIC ACID
     Indication: Product used for unknown indication
     Route: 065
  2. ZYTIGA [Suspect]
     Active Substance: ABIRATERONE ACETATE
     Indication: Product used for unknown indication
     Route: 048
     Dates: start: 20210514
  3. METFORMIN HYDROCHLORIDE [Concomitant]
     Active Substance: METFORMIN HYDROCHLORIDE
     Dosage: 500 MG
  4. CYANOCOBALAMIN [Concomitant]
     Active Substance: CYANOCOBALAMIN
     Dosage: FREQ:7 D;
  5. PREDNISONE [Concomitant]
     Active Substance: PREDNISONE
     Dosage: 1X1.5 (15MG)
  6. VASTAN [Concomitant]
     Dosage: 1X1 IN THE EVENING
  7. EPLERENONE [Concomitant]
     Active Substance: EPLERENONE
     Dosage: 1X1 IN THE MORNING
  8. RAMIPRIL [Concomitant]
     Active Substance: RAMIPRIL
     Dosage: IN THE EVENING
  9. DIETARY SUPPLEMENT [Concomitant]
     Active Substance: DIETARY SUPPLEMENT
  10. ENOXAPARIN SODIUM [Concomitant]
     Active Substance: ENOXAPARIN SODIUM
     Dosage: 1X1 SUBCUTANEOUSLY
  11. PANTOPRAZOLE [Concomitant]
     Active Substance: PANTOPRAZOLE
     Dosage: 1X1 IN THE MORNING ON AN EMPTY STOMACH

REACTIONS (1)
  - Metastases to bone [Unknown]

NARRATIVE: CASE EVENT DATE: 20210701
